FAERS Safety Report 7134426-2 (Version None)
Quarter: 2010Q4

REPORT INFORMATION
  Report Type: 
  Country: None (occurrence: None)
  Receive Date: 20101203
  Receipt Date: 20101129
  Transmission Date: 20110411
  Serious: Yes (Death)
  Sender: FDA-Public Use
  Company Number: PHHO2010TW13106

PATIENT
  Sex: Male

DRUGS (9)
  1. BLINDED ALISKIREN ALI+TAB+CF [Suspect]
     Dosage: UNK
     Route: 048
     Dates: start: 20100302, end: 20100801
  2. BLINDED ENALAPRIL COMP-ENA+ [Suspect]
     Dosage: UNK
     Route: 048
     Dates: start: 20100302, end: 20100801
  3. BLINDED NO TREATMENT RECEIVED NOMED [Suspect]
     Dosage: UNK
     Route: 048
     Dates: start: 20100302, end: 20100801
  4. ALISKIREN [Suspect]
     Indication: CARDIAC FAILURE
     Dosage: 150 MG, UNK
     Dates: start: 20100202, end: 20100301
  5. COMPARATOR ENALAPRIL [Suspect]
     Indication: CARDIAC FAILURE
     Dosage: 10 MG,
     Dates: start: 20100105, end: 20100301
  6. BISOPROLOL [Concomitant]
  7. FUROSEMIDE [Concomitant]
  8. SPIRONOLACTONE [Concomitant]
  9. ISORBIDE [Concomitant]

REACTIONS (1)
  - DEATH [None]
